FAERS Safety Report 10407955 (Version 1)
Quarter: 2014Q2

REPORT INFORMATION
  Report Type: Spontaneous
  Country: US (occurrence: None)
  Receive Date: 20140514
  Receipt Date: 20140514
  Transmission Date: 20141212
  Serious: Yes (Other)
  Sender: FDA-Public Use
  Company Number: 114296U

PATIENT
  Age: 32 Year
  Sex: Female

DRUGS (4)
  1. CIMZIA [Suspect]
     Indication: CROHN^S DISEASE
     Dates: start: 201307, end: 2013
  2. ENTOCORT [Suspect]
     Dates: start: 20140227
  3. ASACOL [Concomitant]
  4. PREDNISONE [Concomitant]

REACTIONS (2)
  - Psychotic disorder [None]
  - Crohn^s disease [None]
